FAERS Safety Report 7600322-7 (Version None)
Quarter: 2011Q2

REPORT INFORMATION
  Report Type: 
  Country: None (occurrence: None)
  Receive Date: 20110629
  Receipt Date: 20110615
  Transmission Date: 20111010
  Serious: Yes (Hospitalization)
  Sender: FDA-Public Use
  Company Number: 2011S1000887

PATIENT
  Age: 66 Year
  Sex: Female

DRUGS (6)
  1. CANDESARTAN CIREXETIL [Concomitant]
  2. BONALON /01220302/ [Concomitant]
  3. PRAVASTATIN SODIUM [Suspect]
     Indication: HYPERLIPIDAEMIA
     Dosage: 5 MG;1X;PO
     Route: 048
     Dates: start: 20110426, end: 20110512
  4. LIVALO [Suspect]
     Indication: HYPERCHOLESTEROLAEMIA
     Dosage: 2 MG;1X;PO
     Route: 048
     Dates: start: 20110512, end: 20110611
  5. HERBAL PREPARATION [Concomitant]
  6. AMLODIPINE BESYLATE [Concomitant]

REACTIONS (3)
  - HEPATIC FUNCTION ABNORMAL [None]
  - MALAISE [None]
  - DECREASED APPETITE [None]
